FAERS Safety Report 11111722 (Version 2)
Quarter: 2015Q2

REPORT INFORMATION
  Report Type: Spontaneous
  Country: US (occurrence: US)
  Receive Date: 20150514
  Receipt Date: 20150521
  Transmission Date: 20150821
  Serious: Yes (Other)
  Sender: FDA-Public Use
  Company Number: US-IPSEN BIOPHARMACEUTICALS, INC.-2015-4897

PATIENT
  Age: 49 Year
  Sex: Female

DRUGS (4)
  1. DYSPORT [Suspect]
     Active Substance: ABOBOTULINUMTOXINA
     Indication: SKIN WRINKLING
  2. DYSPORT [Suspect]
     Active Substance: ABOBOTULINUMTOXINA
     Indication: SKIN WRINKLING
  3. DYSPORT [Suspect]
     Active Substance: ABOBOTULINUMTOXINA
     Indication: SKIN WRINKLING
     Dosage: 162 UNITS
     Route: 062
     Dates: start: 20150418, end: 20150418
  4. DYSPORT [Suspect]
     Active Substance: ABOBOTULINUMTOXINA
     Indication: PRODUCT USE ISSUE

REACTIONS (4)
  - Overdose [Unknown]
  - Wrong technique in drug usage process [Unknown]
  - VIIth nerve paralysis [Recovering/Resolving]
  - Incorrect route of drug administration [Unknown]

NARRATIVE: CASE EVENT DATE: 201505
